FAERS Safety Report 22907491 (Version 2)
Quarter: 2024Q1

REPORT INFORMATION
  Report Type: Spontaneous
  Country: US (occurrence: US)
  Receive Date: 20230905
  Receipt Date: 20240307
  Transmission Date: 20240410
  Serious: Yes (Other)
  Sender: FDA-Public Use
  Company Number: US-PFIZER INC-202300287085

PATIENT
  Age: 71 Year
  Sex: Female
  Weight: 127.4 kg

DRUGS (4)
  1. TRAZIMERA [Suspect]
     Active Substance: TRASTUZUMAB-QYYP
     Indication: Ovarian cancer
     Dosage: 1024 MG (1024MG IV PIGGYBACK)
     Route: 042
     Dates: start: 20230828
  2. PERJETA [Suspect]
     Active Substance: PERTUZUMAB
     Indication: Ovarian cancer
     Dosage: 840 MG
     Dates: start: 20230828
  3. TYLENOL [Concomitant]
     Active Substance: ACETAMINOPHEN
     Dosage: UNK
     Dates: start: 20230828
  4. BENADRYL [Concomitant]
     Active Substance: DIPHENHYDRAMINE HYDROCHLORIDE
     Dosage: UNK
     Dates: start: 20230828

REACTIONS (6)
  - Nausea [Unknown]
  - Vomiting [Not Recovered/Not Resolved]
  - Feeling cold [Unknown]
  - Chills [Unknown]
  - Malaise [Unknown]
  - Off label use [Unknown]

NARRATIVE: CASE EVENT DATE: 20230828
